FAERS Safety Report 14856179 (Version 1)
Quarter: 2018Q2

REPORT INFORMATION
  Report Type: Spontaneous
  Country: US (occurrence: US)
  Receive Date: 20180507
  Receipt Date: 20180507
  Transmission Date: 20180711
  Serious: No
  Sender: FDA-Public Use
  Company Number: US-ROCHE-2016712

PATIENT
  Sex: Male

DRUGS (2)
  1. ESBRIET [Suspect]
     Active Substance: PIRFENIDONE
     Indication: IDIOPATHIC PULMONARY FIBROSIS
     Dosage: NO
     Route: 048
     Dates: end: 20171016
  2. ESBRIET [Suspect]
     Active Substance: PIRFENIDONE
     Dosage: CHANGED TO THE NEW FORMULARY OF 801 MG CAPSULES ;ONGOING: YES
     Route: 048
     Dates: start: 20171016

REACTIONS (1)
  - Dizziness [Unknown]

NARRATIVE: CASE EVENT DATE: 20171026
